FAERS Safety Report 16195141 (Version 1)
Quarter: 2019Q2

REPORT INFORMATION
  Report Type: Report from Study
  Country: IT (occurrence: IT)
  Receive Date: 20190415
  Receipt Date: 20190415
  Transmission Date: 20190711
  Serious: Yes (Other)
  Sender: FDA-Public Use
  Company Number: IT-ROCHE-2299290

PATIENT

DRUGS (5)
  1. MYCOPHENOLATE MOFETIL. [Suspect]
     Active Substance: MYCOPHENOLATE MOFETIL
     Indication: PEMPHIGUS
     Dosage: 1.5 - 2 G
     Route: 065
  2. AZATHIOPRINE. [Suspect]
     Active Substance: AZATHIOPRINE
     Indication: PEMPHIGUS
     Route: 065
  3. IMMUNOGLOBULIN IV [Suspect]
     Active Substance: HUMAN IMMUNOGLOBULIN G
     Indication: PEMPHIGUS
     Dosage: 4 MONTHLY CYCLES AT A DOSE OF 2 G/KG PER CYCLE
     Route: 042
  4. DAPSONE. [Suspect]
     Active Substance: DAPSONE
     Indication: PEMPHIGUS
     Route: 065
  5. RITUXIMAB. [Suspect]
     Active Substance: RITUXIMAB
     Indication: PEMPHIGUS
     Route: 042

REACTIONS (14)
  - Osteoporosis [Unknown]
  - Tremor [Unknown]
  - Gait disturbance [Unknown]
  - Affective disorder [Unknown]
  - Pneumonia [Unknown]
  - Hypertension [Unknown]
  - Cataract [Unknown]
  - Hyperglycaemia [Unknown]
  - Alopecia [Unknown]
  - Dermatitis exfoliative generalised [Unknown]
  - Cardiovascular disorder [Unknown]
  - Gastric disorder [Unknown]
  - Folliculitis [Unknown]
  - Hypokalaemia [Unknown]
